FAERS Safety Report 4967122-8 (Version None)
Quarter: 2006Q2

REPORT INFORMATION
  Report Type: 
  Country: None (occurrence: None)
  Receive Date: 20060403
  Receipt Date: 20060320
  Transmission Date: 20061013
  Serious: Yes (Other)
  Sender: FDA-Public Use
  Company Number: 2005153620

PATIENT
  Age: 53 Year
  Sex: Male

DRUGS (1)
  1. VIAGRA [Suspect]
     Indication: ILL-DEFINED DISORDER
     Dates: start: 19990901

REACTIONS (29)
  - BLINDNESS UNILATERAL [None]
  - CAPILLARY DISORDER [None]
  - EYE PAIN [None]
  - FACIAL PAIN [None]
  - FEELING HOT [None]
  - FLUSHING [None]
  - FUNDOSCOPY ABNORMAL [None]
  - HAEMOGLOBIN DECREASED [None]
  - HEART RATE INCREASED [None]
  - HYPERAEMIA [None]
  - HYPOAESTHESIA [None]
  - HYPOAESTHESIA ORAL [None]
  - HYPOTENSION [None]
  - MASS [None]
  - NERVOUS SYSTEM DISORDER [None]
  - NEUROSIS [None]
  - OEDEMA [None]
  - OPTIC ISCHAEMIC NEUROPATHY [None]
  - PALLOR [None]
  - PAPILLOEDEMA [None]
  - PUPILLARY REFLEX IMPAIRED [None]
  - READING DISORDER [None]
  - SENSORY LOSS [None]
  - SLEEP STUDY ABNORMAL [None]
  - TINNITUS [None]
  - TRIGEMINAL NERVE DISORDER [None]
  - VISION BLURRED [None]
  - VISUAL ACUITY REDUCED [None]
  - VISUAL FIELD DEFECT [None]
